FAERS Safety Report 7028938 (Version 6)
Quarter: 2013Q3

REPORT INFORMATION
  Report Type: Spontaneous
  Country: US (occurrence: US)
  Receive Date: 20090620
  Receipt Date: 20130722
  Transmission Date: 20140515
  Serious: Yes (Hospitalization, Other)
  Sender: FDA-Public Use
  Company Number: US-SANOFI-AVENTIS-A03200902606

PATIENT
  Age: 53 Year
  Sex: Female
  Weight: 78.02 kg

DRUGS (8)
  1. CLOPIDOGREL BISULFATE [Suspect]
     Indication: PROPHYLAXIS
     Dosage: UNIT DOSE: 75 MG
     Route: 048
     Dates: start: 200905, end: 200909
  2. CLOPIDOGREL BISULFATE [Suspect]
     Indication: PROPHYLAXIS
     Route: 048
     Dates: start: 200809, end: 200905
  3. BUSPAR [Concomitant]
     Indication: POST-TRAUMATIC STRESS DISORDER
     Dates: start: 19980110
  4. SIMVASTATIN [Concomitant]
     Indication: BLOOD CHOLESTEROL INCREASED
     Dates: start: 20080709
  5. ZOLOFT [Concomitant]
     Indication: POST-TRAUMATIC STRESS DISORDER
     Dates: start: 19980110
  6. ACETYLSALICYLIC ACID [Concomitant]
     Indication: CARDIAC DISORDER
     Route: 048
     Dates: start: 20080901, end: 2009
  7. ACETYLSALICYLIC ACID [Concomitant]
     Indication: CARDIAC DISORDER
     Route: 048
  8. METFORMIN [Concomitant]

REACTIONS (27)
  - Osteomyelitis [Unknown]
  - Toe amputation [Unknown]
  - Diabetes mellitus [Recovered/Resolved]
  - Feeling jittery [Recovered/Resolved]
  - Neoplasm [Unknown]
  - Transient ischaemic attack [Unknown]
  - Urinary tract infection [Recovered/Resolved]
  - Pollakiuria [Recovered/Resolved]
  - Abnormal faeces [Recovered/Resolved]
  - Urine odour abnormal [Recovered/Resolved]
  - Oedema [Unknown]
  - Muscle spasms [Recovered/Resolved]
  - Gait disturbance [Recovered/Resolved]
  - Dermatitis acneiform [Not Recovered/Not Resolved]
  - Gastrooesophageal reflux disease [Unknown]
  - Neuropathy peripheral [Unknown]
  - Hypoaesthesia [Unknown]
  - Carpal tunnel syndrome [Unknown]
  - Depression [Unknown]
  - Skin lesion [Unknown]
  - Headache [Recovered/Resolved]
  - Vertigo [Recovered/Resolved]
  - Dizziness [Recovered/Resolved]
  - Bleeding time prolonged [Recovered/Resolved]
  - Contusion [Recovered/Resolved]
  - Overdose [Unknown]
  - Drug dispensing error [Unknown]
